FAERS Safety Report 12964265 (Version 1)
Quarter: 2016Q4

REPORT INFORMATION
  Report Type: Spontaneous
  Country: US (occurrence: US)
  Receive Date: 20161122
  Receipt Date: 20161122
  Transmission Date: 20170207
  Serious: No
  Sender: FDA-Public Use
  Company Number: US-PFIZER INC-2016489721

PATIENT
  Age: 37 Year
  Sex: Male
  Weight: 140 kg

DRUGS (2)
  1. KENALOG [Suspect]
     Active Substance: TRIAMCINOLONE ACETONIDE
     Indication: ARTHRALGIA
     Dosage: UNK
  2. DEPO-PROVERA [Suspect]
     Active Substance: MEDROXYPROGESTERONE ACETATE
     Indication: ARTHRALGIA
     Dosage: 350 MG, UNK (175 MG IN EACH KNEE, GIVEN IN BOTH KNEE JOINTS)
     Dates: start: 20161018, end: 20161018

REACTIONS (2)
  - Wrong drug administered [Unknown]
  - Arthralgia [Not Recovered/Not Resolved]

NARRATIVE: CASE EVENT DATE: 20161018
